FAERS Safety Report 13586102 (Version 1)
Quarter: 2017Q2

REPORT INFORMATION
  Report Type: Not Available
  Country: TR (occurrence: TR)
  Receive Date: 20170526
  Receipt Date: 20170526
  Transmission Date: 20170830
  Serious: Yes (Congenital Anomaly)
  Sender: FDA-Public Use
  Company Number: TR-ANIPHARMA-2017-TR-000017

PATIENT
  Age: 5 Year
  Sex: Male

DRUGS (1)
  1. VALPROIC ACID (NON-SPECIFIC) [Suspect]
     Active Substance: VALPROIC ACID
     Route: 015

REACTIONS (6)
  - Foetal anticonvulsant syndrome [Unknown]
  - Respiratory failure [Unknown]
  - Dysmorphism [Not Recovered/Not Resolved]
  - Hydrops foetalis [Unknown]
  - Speech disorder [Unknown]
  - Cryptorchism [Recovered/Resolved with Sequelae]
